FAERS Safety Report 23070953 (Version 2)
Quarter: 2023Q4

REPORT INFORMATION
  Report Type: Spontaneous
  Country: US (occurrence: US)
  Receive Date: 20231016
  Receipt Date: 20231114
  Transmission Date: 20240110
  Serious: No
  Sender: FDA-Public Use
  Company Number: US-PFIZER INC-202200531222

PATIENT
  Age: 41 Year
  Sex: Female

DRUGS (2)
  1. PREMARIN [Suspect]
     Active Substance: ESTROGENS, CONJUGATED
     Indication: Hormone therapy
     Dosage: 1 TAB AT BED TIME
     Route: 048
  2. PREMARIN [Suspect]
     Active Substance: ESTROGENS, CONJUGATED
     Dosage: 1 DF, 2X/WEEK
     Route: 067

REACTIONS (6)
  - Antinuclear antibody positive [Unknown]
  - Erythema nodosum [Unknown]
  - Inflammation [Unknown]
  - Spondylitis [Unknown]
  - Off label use [Unknown]
  - Off label use [Unknown]

NARRATIVE: CASE EVENT DATE: 20230828
